FAERS Safety Report 10008507 (Version 2)
Quarter: 2014Q1

REPORT INFORMATION
  Report Type: Spontaneous
  Country: JP (occurrence: JP)
  Receive Date: 20140313
  Receipt Date: 20140313
  Transmission Date: 20141002
  Serious: Yes (Death)
  Sender: FDA-Public Use
  Company Number: JP-BAYER-2013-118493

PATIENT
  Age: 77 Year
  Sex: Male
  Weight: 58 kg

DRUGS (5)
  1. NEXAVAR [Suspect]
     Indication: HEPATOCELLULAR CARCINOMA
     Dosage: 200 MG, BID
     Route: 048
     Dates: start: 20130902, end: 20140103
  2. WARFARIN [Concomitant]
     Route: 048
  3. URSO [Concomitant]
     Route: 048
  4. MAGLAX [Concomitant]
     Route: 048
  5. LIVACT [Concomitant]
     Route: 048

REACTIONS (2)
  - Hepatic failure [Fatal]
  - Palmar-plantar erythrodysaesthesia syndrome [Recovering/Resolving]
